FAERS Safety Report 26115504 (Version 1)
Quarter: 2025Q4

REPORT INFORMATION
  Report Type: Spontaneous
  Country: EU (occurrence: EU)
  Receive Date: 20251203
  Receipt Date: 20251203
  Transmission Date: 20260118
  Serious: Yes (Other)
  Sender: SAMSUNG BIOEPIS
  Company Number: None

PATIENT
  Age: 52 Year
  Sex: Male

DRUGS (1)
  1. INFLIXIMAB [Suspect]
     Active Substance: INFLIXIMAB
     Indication: Meniere^s disease
     Dosage: TRANSTYMPANIC;
     Route: 001
     Dates: start: 20251001, end: 20251014

REACTIONS (4)
  - Paraesthesia [Not Recovered/Not Resolved]
  - Tremor [Not Recovered/Not Resolved]
  - Dyskinesia [Not Recovered/Not Resolved]
  - Product use in unapproved indication [Unknown]

NARRATIVE: CASE EVENT DATE: 20251001
